FAERS Safety Report 7371389-9 (Version None)
Quarter: 2011Q1

REPORT INFORMATION
  Report Type: 
  Country: None (occurrence: None)
  Receive Date: 20110321
  Receipt Date: 20110321
  Transmission Date: 20110831
  Serious: Yes (Hospitalization)
  Sender: FDA-Public Use
  Company Number: None

PATIENT
  Age: 13 Month
  Sex: Female

DRUGS (1)
  1. HYLAND'S TEETHING TABLETS HYLAND'S INC. [Suspect]
     Indication: TEETHING
     Dosage: 2 TO 3 TABS 4 TIMES A DAY PO; 2 TABS EVERY HR FOR 6 DOS PO
     Route: 048
     Dates: start: 20100805, end: 20100805

REACTIONS (6)
  - BLOOD CANNABINOIDS [None]
  - DRUG SCREEN FALSE POSITIVE [None]
  - IMPRISONMENT [None]
  - EYE MOVEMENT DISORDER [None]
  - ABNORMAL BEHAVIOUR [None]
  - UNRESPONSIVE TO STIMULI [None]
